FAERS Safety Report 12884408 (Version 1)
Quarter: 2016Q4

REPORT INFORMATION
  Report Type: Spontaneous
  Country: US (occurrence: US)
  Receive Date: 20161026
  Receipt Date: 20161026
  Transmission Date: 20170207
  Serious: Yes (Other)
  Sender: FDA-Public Use
  Company Number: PHEH2016US027506

PATIENT
  Sex: Female

DRUGS (1)
  1. VOTRIENT [Suspect]
     Active Substance: PAZOPANIB HYDROCHLORIDE
     Indication: RENAL CANCER
     Dosage: 800 MG, QD
     Route: 048
     Dates: start: 20160809, end: 201609

REACTIONS (5)
  - Decreased appetite [Unknown]
  - Haematemesis [Unknown]
  - Asthenia [Unknown]
  - Hepatic function abnormal [Recovering/Resolving]
  - Nausea [Unknown]
